FAERS Safety Report 9098508 (Version 1)
Quarter: 2013Q1

REPORT INFORMATION
  Report Type: Spontaneous
  Country: CA (occurrence: CA)
  Receive Date: 20130213
  Receipt Date: 20130213
  Transmission Date: 20140127
  Serious: Yes (Death)
  Sender: FDA-Public Use
  Company Number: CA-B.I. PHARMACEUTICALS,INC./RIDGEFIELD-2013-CN-00233CN

PATIENT
  Age: 88 Year
  Sex: Female
  Weight: 52.61 kg

DRUGS (3)
  1. PRADAX [Suspect]
     Dosage: 220 MG
     Route: 048
  2. BISOPROLOL [Concomitant]
  3. HYZAAR DS [Concomitant]

REACTIONS (1)
  - Cerebral haemorrhage [Fatal]
